FAERS Safety Report 7809901-5 (Version None)
Quarter: 2011Q4

REPORT INFORMATION
  Report Type: 
  Country: None (occurrence: None)
  Receive Date: 20111012
  Receipt Date: 20111003
  Transmission Date: 20120403
  Serious: Yes (Disabling)
  Sender: FDA-Public Use
  Company Number: PHHY2011GB53003

PATIENT
  Age: 75 Year
  Sex: Male
  Weight: 72 kg

DRUGS (8)
  1. FLUOROURACIL [Suspect]
     Dosage: 2100 MG, UNK
  2. DEXAMETHASONE [Concomitant]
  3. IRINOTECAN HCL [Suspect]
     Dosage: 260 MG, UNK
     Route: 042
     Dates: start: 20100120, end: 20110511
  4. IRINOTECAN HCL [Suspect]
     Dosage: 320 UNK, UNK
  5. FLUOROURACIL [Suspect]
     Dosage: 2800 MG, UNK
  6. ASPIRIN [Concomitant]
  7. ONDANSETRON [Concomitant]
  8. FLUOROURACIL [Suspect]
     Dosage: 600 MG, UNK

REACTIONS (1)
  - PULMONARY FIBROSIS [None]
